FAERS Safety Report 8792422 (Version 1)
Quarter: 2012Q4

REPORT INFORMATION
  Report Type: 
  Country: US (occurrence: US)
  Receive Date: 20120918
  Receipt Date: 20120918
  Transmission Date: 20130627
  Serious: No
  Sender: FDA-Public Use
  Company Number: PHEH2012US018103

PATIENT
  Sex: Female
  Weight: 88.89 kg

DRUGS (7)
  1. TASIGNA [Suspect]
     Indication: LEUKAEMIA
     Dosage: 200 mg, BID
     Dates: start: 20120903
  2. AMBIEN [Concomitant]
  3. NEOFED [Concomitant]
  4. OMEPRAZOLE [Concomitant]
  5. PERCOCET [Concomitant]
  6. PROMETHAZINE [Concomitant]
  7. XANAX [Concomitant]

REACTIONS (12)
  - Abdominal pain upper [Unknown]
  - Flatulence [Unknown]
  - Eructation [Unknown]
  - Decreased appetite [Unknown]
  - Hyperhidrosis [Unknown]
  - Muscle spasms [Unknown]
  - Rash [Not Recovered/Not Resolved]
  - Tenderness [Not Recovered/Not Resolved]
  - Abdominal tenderness [None]
  - Weight decreased [None]
  - Cold sweat [None]
  - Rash [None]
